FAERS Safety Report 8459072-X (Version None)
Quarter: 2012Q2

REPORT INFORMATION
  Report Type: 
  Country: None (occurrence: None)
  Receive Date: 20120622
  Receipt Date: 20120615
  Transmission Date: 20120825
  Serious: Yes (Other)
  Sender: FDA-Public Use
  Company Number: US-CELGENEUS-163-21880-12062447

PATIENT
  Sex: Male
  Weight: 66.738 kg

DRUGS (7)
  1. VYTORIN [Concomitant]
     Route: 065
  2. REVLIMID [Suspect]
     Indication: MULTIPLE MYELOMA
     Dosage: 25 MILLIGRAM
     Route: 048
     Dates: start: 20111116
  3. METOPROLOL [Concomitant]
     Dosage: 12.5 MILLIGRAM
     Route: 065
  4. AXID [Concomitant]
     Route: 065
  5. REVLIMID [Suspect]
     Dosage: 10 MILLIGRAM
     Route: 048
     Dates: start: 20120601
  6. SYNTHROID [Concomitant]
     Route: 065
  7. ASPIRIN [Concomitant]
     Dosage: 325 MILLIGRAM
     Route: 065

REACTIONS (1)
  - HUNTINGTON'S DISEASE [None]
